FAERS Safety Report 5141031-6 (Version None)
Quarter: 2006Q4

REPORT INFORMATION
  Report Type: 
  Country: None (occurrence: None)
  Receive Date: 20061026
  Receipt Date: 20061012
  Transmission Date: 20070319
  Serious: Yes (Other)
  Sender: FDA-Public Use
  Company Number: 2006EU001830

PATIENT
  Age: 18 Year
  Sex: Female

DRUGS (6)
  1. TRACROLIMUS  CAPSULES (TRACROLIMUS) CAPSULES [Suspect]
     Dosage: SEE IMAGE
     Route: 048
     Dates: end: 20060223
  2. TRACROLIMUS  CAPSULES (TRACROLIMUS) CAPSULES [Suspect]
     Dosage: SEE IMAGE
     Route: 048
     Dates: start: 20060223, end: 20060225
  3. TRACROLIMUS  CAPSULES (TRACROLIMUS) CAPSULES [Suspect]
     Dosage: SEE IMAGE
     Route: 048
     Dates: start: 20060225, end: 20060225
  4. TRACROLIMUS  CAPSULES (TRACROLIMUS) CAPSULES [Suspect]
     Dosage: SEE IMAGE
     Route: 048
     Dates: start: 20060226, end: 20060226
  5. TRACROLIMUS  CAPSULES (TRACROLIMUS) CAPSULES [Suspect]
     Dosage: SEE IMAGE
     Route: 048
     Dates: start: 20060227
  6. FERROUS FUMARATE [Concomitant]

REACTIONS (11)
  - ABDOMINAL PAIN UPPER [None]
  - CAESAREAN SECTION [None]
  - DEHYDRATION [None]
  - DRUG EXPOSURE DURING PREGNANCY [None]
  - ESCHERICHIA URINARY TRACT INFECTION [None]
  - FAILED INDUCTION OF LABOUR [None]
  - INDUCED LABOUR [None]
  - LIVER DISORDER [None]
  - LIVER FUNCTION TEST ABNORMAL [None]
  - PREGNANCY [None]
  - RENAL IMPAIRMENT [None]
